FAERS Safety Report 8361677-1 (Version None)
Quarter: 2012Q2

REPORT INFORMATION
  Report Type: 
  Country: None (occurrence: None)
  Receive Date: 20120515
  Receipt Date: 20120307
  Transmission Date: 20120825
  Serious: No
  Sender: FDA-Public Use
  Company Number: US-ABBOTT-12P-163-0913162-00

PATIENT
  Sex: Male

DRUGS (2)
  1. PROMETRIUM [Suspect]
     Indication: PRODUCT USED FOR UNKNOWN INDICATION
     Dates: start: 20120101
  2. PROVIGIL [Suspect]
     Indication: PRODUCT USED FOR UNKNOWN INDICATION

REACTIONS (2)
  - DRUG DISPENSING ERROR [None]
  - WRONG DRUG ADMINISTERED [None]
